FAERS Safety Report 7812531-2 (Version None)
Quarter: 2011Q4

REPORT INFORMATION
  Report Type: 
  Country: None (occurrence: None)
  Receive Date: 20111013
  Receipt Date: 20111006
  Transmission Date: 20120403
  Serious: Yes (Death, Other)
  Sender: FDA-Public Use
  Company Number: JP-PFIZER INC-2011235295

PATIENT
  Age: 64 Year
  Sex: Male

DRUGS (6)
  1. DIART [Concomitant]
     Indication: ASCITES
     Dosage: 60 MG, DAILY
     Route: 048
     Dates: end: 20110907
  2. INDERAL [Suspect]
     Indication: SMALL INTESTINAL HAEMORRHAGE
     Dosage: 10 MG, 3X/DAY
     Route: 048
     Dates: start: 20110817, end: 20110907
  3. ALDACTONE [Concomitant]
     Indication: ASCITES
     Dosage: 100 MG, DAILY
     Route: 048
     Dates: end: 20110907
  4. INDERAL [Suspect]
     Indication: PORTAL HYPERTENSION
  5. AMINOLEBAN EN [Concomitant]
     Indication: HYPOALBUMINAEMIA
     Dosage: 50 G,DAILY
     Route: 048
     Dates: end: 20110907
  6. MONILAC [Concomitant]
     Indication: HEPATIC ENCEPHALOPATHY
     Dosage: 10 ML, 3X/DAY
     Dates: end: 20110907

REACTIONS (1)
  - LIVER CARCINOMA RUPTURED [None]
